FAERS Safety Report 12327884 (Version 2)
Quarter: 2016Q2

REPORT INFORMATION
  Report Type: Spontaneous
  Country: US (occurrence: US)
  Receive Date: 20160503
  Receipt Date: 20160523
  Transmission Date: 20160815
  Serious: Yes (Hospitalization, Other)
  Sender: FDA-Public Use
  Company Number: US-SMITH AND NEPHEW, INC-2016SMT00350

PATIENT
  Age: 83 Year
  Sex: Female
  Weight: 63.49 kg

DRUGS (8)
  1. REGRANEX [Suspect]
     Active Substance: BECAPLERMIN
     Dosage: UNK, 1X/DAY
     Route: 061
     Dates: start: 20160418, end: 20160418
  2. UNSPECIFIED VITAMIN PILLS [Concomitant]
     Dosage: UNK
  3. UNSPECIFIED THYROID PILLS [Concomitant]
  4. REGRANEX [Suspect]
     Active Substance: BECAPLERMIN
     Indication: SKIN ULCER
     Dosage: UNK, 1X/DAY
     Route: 061
     Dates: start: 20160322, end: 20160413
  5. NEOSPORIN WITH PAIN RELIEF [Concomitant]
     Indication: PAIN IN EXTREMITY
     Dosage: UNK, 2X/DAY
     Route: 061
  6. UNSPECIFIED ARTERIOGRAM DYE [Suspect]
     Active Substance: UNSPECIFIED INGREDIENT
     Indication: ARTERIOGRAM
     Dosage: UNK
     Dates: start: 20160502, end: 20160502
  7. UNSPECIFIED HIGH BLOOD PRESSURE PILL [Concomitant]
     Dosage: UNK
  8. ELIQUIS [Concomitant]
     Active Substance: APIXABAN
     Dosage: UNK

REACTIONS (6)
  - Drug ineffective for unapproved indication [Unknown]
  - Urinary tract infection [Unknown]
  - Cardiovascular disorder [Unknown]
  - Procedural pain [Unknown]
  - Contrast media allergy [Unknown]
  - Arteriogram [Unknown]

NARRATIVE: CASE EVENT DATE: 2016
